FAERS Safety Report 13961254 (Version 1)
Quarter: 2017Q3

REPORT INFORMATION
  Report Type: Report from Study
  Country: US (occurrence: US)
  Receive Date: 20170912
  Receipt Date: 20170912
  Transmission Date: 20171128
  Serious: Yes (Hospitalization)
  Sender: FDA-Public Use
  Company Number: US-BAYER-2017-168951

PATIENT
  Sex: Female

DRUGS (2)
  1. GADOLINIUM [Suspect]
     Active Substance: GADOLINIUM
     Indication: NUCLEAR MAGNETIC RESONANCE IMAGING
     Dosage: THE LAST ONE WAS ON 9-JUN-2016
     Dates: start: 20160609
  2. GADOLINIUM [Suspect]
     Active Substance: GADOLINIUM
     Indication: NUCLEAR MAGNETIC RESONANCE IMAGING
     Dosage: UNK

REACTIONS (16)
  - Formication [Recovering/Resolving]
  - Disturbance in attention [Recovering/Resolving]
  - Abdominal discomfort [Recovering/Resolving]
  - Paraesthesia [Recovering/Resolving]
  - Eye irritation [Recovering/Resolving]
  - Gadolinium deposition disease [Recovering/Resolving]
  - Abdominal pain [Recovering/Resolving]
  - Hypoaesthesia [Recovering/Resolving]
  - Mental impairment [Recovering/Resolving]
  - Cognitive disorder [Recovering/Resolving]
  - Nausea [Recovering/Resolving]
  - Pruritus [Recovering/Resolving]
  - Burning sensation [Recovering/Resolving]
  - Arthralgia [Recovering/Resolving]
  - Communication disorder [Recovering/Resolving]
  - Injection site discolouration [Recovering/Resolving]
